FAERS Safety Report 16697407 (Version 1)
Quarter: 2019Q3

REPORT INFORMATION
  Report Type: Spontaneous
  Country: US (occurrence: US)
  Receive Date: 20190626
  Receipt Date: 20190626
  Transmission Date: 20191004
  Serious: No
  Sender: FDA-Public Use
  Company Number: None

PATIENT
  Age: 59 Week
  Sex: Female
  Weight: 84.37 kg

DRUGS (1)
  1. FORTEO [Suspect]
     Active Substance: TERIPARATIDE
     Indication: OSTEOPOROSIS
     Route: 058
     Dates: start: 201906

REACTIONS (5)
  - Pain [None]
  - Fibromyalgia [None]
  - Dizziness [None]
  - Nausea [None]
  - Asthenia [None]
